FAERS Safety Report 7513948-6 (Version None)
Quarter: 2011Q2

REPORT INFORMATION
  Report Type: 
  Country: None (occurrence: None)
  Receive Date: 20110531
  Receipt Date: 20071220
  Transmission Date: 20111010
  Serious: Yes (Hospitalization, Disabling, Other)
  Sender: FDA-Public Use
  Company Number: US-BAYER-200716975NA

PATIENT
  Age: 45 Year
  Sex: Female
  Weight: 69 kg

DRUGS (24)
  1. NEURONTIN [Concomitant]
     Dosage: 300 MG, UNK
     Route: 048
     Dates: start: 20030101
  2. LEVOPHED [Concomitant]
     Dosage: UNK
     Route: 042
     Dates: start: 20050608, end: 20050608
  3. LIDOCAINE [Concomitant]
     Dosage: 100 MG
     Route: 042
     Dates: start: 20050608, end: 20050608
  4. LOTREL [Concomitant]
     Dosage: UNK
     Route: 048
     Dates: start: 20030101
  5. ATENOLOL [Concomitant]
     Dosage: 100 MG, UNK
     Route: 048
     Dates: start: 20030101
  6. HEPARIN [Concomitant]
     Dosage: 25000 U, UNK
     Route: 042
     Dates: start: 20050608, end: 20050608
  7. DOBUTAMINE HYDROCHLORIDE [Concomitant]
     Dosage: UNK
     Route: 042
     Dates: start: 20050608, end: 20050608
  8. VECURONIUM BROMIDE [Concomitant]
     Dosage: UNK
     Route: 042
     Dates: start: 20050608, end: 20050608
  9. NITROGLYCERIN [Concomitant]
     Dosage: UNK
     Route: 042
     Dates: start: 20050608, end: 20050608
  10. PLASMA [Concomitant]
     Dosage: 400 ML, UNK
  11. ANCEF [Concomitant]
     Dosage: 1 G, UNK
     Route: 042
     Dates: start: 20050608, end: 20050608
  12. TRASYLOL [Suspect]
     Dosage: 2MILLIION LOADING DOSE
     Route: 042
     Dates: start: 20050608, end: 20050608
  13. LIPITOR [Concomitant]
     Dosage: UNK
     Route: 048
     Dates: start: 20030101
  14. ACETYLSALICYLIC ACID SRT [Concomitant]
     Dosage: 81 MG, UNK
     Route: 048
     Dates: start: 20050405
  15. FENTANYL [Concomitant]
     Dosage: 5CC
     Route: 042
     Dates: start: 20050608, end: 20050608
  16. ETOMIDATE [Concomitant]
     Dosage: UNK
     Route: 042
     Dates: start: 20050608, end: 20050608
  17. PLAVIX [Concomitant]
     Dosage: 75 MG, UNK
     Route: 048
     Dates: start: 20050405
  18. VERSED [Concomitant]
     Dosage: 8 MG, UNK
     Route: 048
     Dates: start: 20050608, end: 20050608
  19. ATROPINE [Concomitant]
     Dosage: UNK
     Route: 042
     Dates: start: 20050608, end: 20050608
  20. LASIX [Concomitant]
     Dosage: 20 MG, UNK
     Route: 042
     Dates: start: 20050608, end: 20050608
  21. INSULIN [Concomitant]
     Dosage: 6 U, UNK
     Route: 042
     Dates: start: 20050608, end: 20050608
  22. PREMARIN [Concomitant]
     Dosage: 1.25 MG, UNK
     Route: 048
     Dates: start: 19990101, end: 20040101
  23. RED BLOOD CELLS [Concomitant]
     Dosage: 3 U, UNK
  24. TRASYLOL [Suspect]
     Indication: CORONARY ARTERY BYPASS
     Dosage: 200CC PUMP PRIME
     Route: 042
     Dates: start: 20050608, end: 20050608

REACTIONS (10)
  - FEAR [None]
  - ADVERSE EVENT [None]
  - DEPRESSION [None]
  - ANHEDONIA [None]
  - RENAL FAILURE [None]
  - ANXIETY [None]
  - PAIN [None]
  - INJURY [None]
  - NERVOUSNESS [None]
  - EMOTIONAL DISTRESS [None]
